FAERS Safety Report 6627682-8 (Version None)
Quarter: 2010Q1

REPORT INFORMATION
  Report Type: 
  Country: None (occurrence: None)
  Receive Date: 20100311
  Receipt Date: 20100226
  Transmission Date: 20100710
  Serious: Yes (Other)
  Sender: FDA-Public Use
  Company Number: PHHY2009FR54810

PATIENT
  Sex: Female

DRUGS (7)
  1. ACLASTA [Suspect]
     Indication: OSTEOPOROTIC FRACTURE
     Dosage: UNK
     Dates: start: 20091120
  2. PARACETAMOL [Concomitant]
     Dosage: 2 G
     Dates: start: 20090717
  3. DIPROSONE [Concomitant]
     Dosage: UNK
     Route: 030
     Dates: start: 20091110
  4. INFLUENZA VACCINE [Concomitant]
     Dosage: UNK
     Dates: start: 20091030
  5. TETANUS VACCINE [Concomitant]
     Dosage: UNK
     Dates: start: 20091023
  6. TETANUS VACCINE [Concomitant]
     Dosage: UNK
     Dates: start: 20091120
  7. PNEUMOCOCCAL VACCINE [Concomitant]
     Dosage: UNK
     Dates: start: 20091109

REACTIONS (10)
  - ABDOMINAL PAIN LOWER [None]
  - ARTHRALGIA [None]
  - ASTHENIA [None]
  - BEDRIDDEN [None]
  - FATIGUE [None]
  - HEPATITIS [None]
  - HEPATOMEGALY [None]
  - INFLAMMATION [None]
  - MENTAL IMPAIRMENT [None]
  - PYREXIA [None]
